FAERS Safety Report 5324705-3 (Version None)
Quarter: 2007Q2

REPORT INFORMATION
  Report Type: 
  Country: None (occurrence: None)
  Receive Date: 20070509
  Receipt Date: 20070426
  Transmission Date: 20071010
  Serious: Yes (Hospitalization)
  Sender: FDA-Public Use
  Company Number: FABR-11919

PATIENT
  Age: 53 Year
  Sex: Male
  Weight: 77 kg

DRUGS (10)
  1. FABRAZYME [Suspect]
     Indication: FABRY'S DISEASE
     Dosage: 70 MG Q2WKS IV
     Route: 042
     Dates: start: 20050304, end: 20070123
  2. ASPIRIN [Concomitant]
  3. WARFARIN POTASSIUM [Concomitant]
  4. ALLOPURINOL [Concomitant]
  5. BENIDIPINE HYDROCHLORIDE [Concomitant]
  6. METILDIGOXIN [Concomitant]
  7. FUROSEMIDE [Concomitant]
  8. CANDESARTAN CILEXETIL [Concomitant]
  9. CARVEDILOL [Concomitant]
  10. CARPERITIDE [Concomitant]

REACTIONS (7)
  - AORTIC VALVE INCOMPETENCE [None]
  - BRONCHITIS [None]
  - CARDIAC FAILURE [None]
  - CONDITION AGGRAVATED [None]
  - MITRAL VALVE INCOMPETENCE [None]
  - MITRAL VALVE PROLAPSE [None]
  - TRICUSPID VALVE INCOMPETENCE [None]
